FAERS Safety Report 4664004-6 (Version None)
Quarter: 2005Q2

REPORT INFORMATION
  Report Type: 
  Country: None (occurrence: None)
  Receive Date: 20050516
  Receipt Date: 20050503
  Transmission Date: 20051028
  Serious: Yes (Hospitalization, Other)
  Sender: FDA-Public Use
  Company Number: 2005070116

PATIENT
  Sex: Male

DRUGS (6)
  1. XANAX [Suspect]
     Indication: ILL-DEFINED DISORDER
  2. ZOLOFT [Suspect]
     Indication: ILL-DEFINED DISORDER
  3. FLUOXETINE HCL [Suspect]
     Indication: ILL-DEFINED DISORDER
  4. VENLAFAXINE HCL [Suspect]
     Indication: ILL-DEFINED DISORDER
  5. MIRTAZAPINE [Suspect]
     Indication: ILL-DEFINED DISORDER
  6. ALL OTHER THERAPEUTIC PRODUCTS (ALL OTHER THERAPEUTIC PRODUCTS) [Suspect]
     Indication: ILL-DEFINED DISORDER

REACTIONS (4)
  - DRUG DEPENDENCE [None]
  - FEAR [None]
  - PAIN [None]
  - UNEVALUABLE EVENT [None]
